FAERS Safety Report 12914045 (Version 1)
Quarter: 2016Q4

REPORT INFORMATION
  Report Type: Spontaneous
  Country: US (occurrence: US)
  Receive Date: 20161105
  Receipt Date: 20161105
  Transmission Date: 20170207
  Serious: No
  Sender: FDA-Public Use
  Company Number: US-AUROBINDO-AUR-APL-2015-08205

PATIENT
  Sex: Male
  Weight: 99.8 kg

DRUGS (1)
  1. METOPROLOL. [Suspect]
     Active Substance: METOPROLOL
     Indication: STENT PLACEMENT
     Dosage: UNK
     Route: 048
     Dates: start: 201308

REACTIONS (2)
  - Dyspepsia [Unknown]
  - Abdominal discomfort [Unknown]
